FAERS Safety Report 17967198 (Version 1)
Quarter: 2020Q3

REPORT INFORMATION
  Report Type: Spontaneous
  Country: IL (occurrence: IL)
  Receive Date: 20200701
  Receipt Date: 20200701
  Transmission Date: 20201103
  Serious: Yes (Other)
  Sender: FDA-Public Use
  Company Number: NVSC2020IL180953

PATIENT
  Age: 82 Year
  Sex: Female

DRUGS (1)
  1. SANDOSTATIN [Suspect]
     Active Substance: OCTREOTIDE ACETATE
     Indication: WOUND DRAINAGE
     Dosage: 0.1 MG, TID
     Route: 065

REACTIONS (2)
  - Product use in unapproved indication [Unknown]
  - Bradycardia [Unknown]
